FAERS Safety Report 18031052 (Version 1)
Quarter: 2020Q3

REPORT INFORMATION
  Report Type: Spontaneous
  Country: TW (occurrence: TW)
  Receive Date: 20200715
  Receipt Date: 20200715
  Transmission Date: 20201103
  Serious: Yes (Other)
  Sender: FDA-Public Use
  Company Number: TW-ROCHE-2641985

PATIENT
  Age: 34 Year
  Sex: Female

DRUGS (2)
  1. ALECENSA [Suspect]
     Active Substance: ALECTINIB HYDROCHLORIDE
     Indication: PRODUCT USED FOR UNKNOWN INDICATION
     Dosage: LAST DOSE JAN/2019
     Route: 048
     Dates: start: 201812
  2. LORLATINIB [Concomitant]
     Active Substance: LORLATINIB
     Route: 065
     Dates: start: 20190612

REACTIONS (2)
  - Neoplasm progression [Unknown]
  - Pleural effusion [Unknown]
